FAERS Safety Report 26065195 (Version 1)
Quarter: 2025Q4

REPORT INFORMATION
  Report Type: Spontaneous
  Country: EU (occurrence: EU)
  Receive Date: 20251119
  Receipt Date: 20251119
  Transmission Date: 20260118
  Serious: Yes (Other)
  Sender: BAYER HEALTHCARE PHARMACEUTICALS INC.
  Company Number: EU-BAYER-2025A150286

PATIENT
  Age: 86 Year
  Sex: Female

DRUGS (15)
  1. KERENDIA [Suspect]
     Active Substance: FINERENONE
     Dosage: 10 MG, QD
  2. ANDOL [Concomitant]
     Active Substance: ASPIRIN
     Dosage: 100MG
     Dates: start: 2021
  3. CLOPIDOGREL BISULFATE [Concomitant]
     Active Substance: CLOPIDOGREL BISULFATE
     Dosage: 75 MG QD
     Dates: start: 2021
  4. DIURON [Concomitant]
     Active Substance: DIURON
     Dosage: 25MG
     Dates: start: 2021
  5. BISOPROLOL FUMARATE [Concomitant]
     Active Substance: BISOPROLOL FUMARATE
     Dosage: 2.5 MG
     Dates: start: 2021
  6. BISOPROLOL FUMARATE [Concomitant]
     Active Substance: BISOPROLOL FUMARATE
     Dosage: 1.25 MG QD
  7. LERCANIDIPINE HYDROCHLORIDE [Concomitant]
     Active Substance: LERCANIDIPINE HYDROCHLORIDE
     Dosage: 10 MG
     Dates: start: 2021
  8. PANTOPRAZOLE SODIUM [Concomitant]
     Active Substance: PANTOPRAZOLE SODIUM
     Dosage: 20MG
     Dates: start: 2021
  9. ATORVASTATIN [Concomitant]
     Active Substance: ATORVASTATIN
     Dosage: 80MG
     Dates: start: 2021
  10. TOUJEO [Concomitant]
     Active Substance: INSULIN GLARGINE
     Dosage: 12IJ
     Dates: start: 2021
  11. TRULICITY [Concomitant]
     Active Substance: DULAGLUTIDE
     Dosage: 1.5MG 1X WEEKLY
     Dates: start: 2021
  12. TORSEMIDE [Concomitant]
     Active Substance: TORSEMIDE
     Dosage: 10 MG
     Dates: start: 2021
  13. NOVORAPID [Concomitant]
     Active Substance: INSULIN ASPART
     Dosage: UNK
     Dates: start: 2021
  14. FUROSEMIDE [Concomitant]
     Active Substance: FUROSEMIDE
     Dosage: 40 MG QD
  15. ASPIRIN [Concomitant]
     Active Substance: ASPIRIN
     Dosage: 100MG QD

REACTIONS (7)
  - N-terminal prohormone brain natriuretic peptide increased [None]
  - Blood creatinine increased [None]
  - Glomerular filtration rate decreased [None]
  - Dyspnoea exertional [None]
  - Asthenia [None]
  - Urinary tract infection [None]
  - Dyspnoea [None]
